FAERS Safety Report 5422991-2 (Version None)
Quarter: 2007Q3

REPORT INFORMATION
  Report Type: 
  Country: None (occurrence: None)
  Receive Date: 20070822
  Receipt Date: 20070821
  Transmission Date: 20080115
  Serious: Yes (Disabling)
  Sender: FDA-Public Use
  Company Number: US-MERCK-0706USA02384

PATIENT
  Age: 70 Year
  Sex: Female
  Weight: 117 kg

DRUGS (3)
  1. VYTORIN [Suspect]
     Indication: BLOOD CHOLESTEROL INCREASED
     Route: 048
     Dates: start: 20070330, end: 20070423
  2. DICYCLOMINE HYDROCHLORIDE [Concomitant]
     Route: 065
  3. NEXIUM [Concomitant]
     Route: 065

REACTIONS (2)
  - BREAST PAIN [None]
  - CHEST PAIN [None]
